FAERS Safety Report 12890955 (Version 3)
Quarter: 2016Q4

REPORT INFORMATION
  Report Type: Report from Study
  Country: BR (occurrence: BR)
  Receive Date: 20161027
  Receipt Date: 20161108
  Transmission Date: 20170207
  Serious: Yes (Death, Other)
  Sender: FDA-Public Use
  Company Number: BR-ALEXION PHARMACEUTICALS INC-A201608192

PATIENT
  Age: 35 Year
  Sex: Female

DRUGS (2)
  1. SOLIRIS [Suspect]
     Active Substance: ECULIZUMAB
     Indication: HAEMOLYTIC URAEMIC SYNDROME
     Dosage: 900 MG, UNK
     Route: 042
     Dates: start: 20151216
  2. SOLIRIS [Suspect]
     Active Substance: ECULIZUMAB
     Dosage: 1200 MG, UNK
     Route: 042

REACTIONS (7)
  - Platelet count decreased [Unknown]
  - Confusional state [Unknown]
  - Cerebrovascular accident [Fatal]
  - Device related infection [Unknown]
  - Cardiac arrest [Fatal]
  - Anaemia [Unknown]
  - Endocarditis bacterial [Fatal]

NARRATIVE: CASE EVENT DATE: 20161019
